FAERS Safety Report 10724986 (Version 5)
Quarter: 2015Q1

REPORT INFORMATION
  Report Type: Spontaneous
  Country: RO (occurrence: RO)
  Receive Date: 20150120
  Receipt Date: 20150319
  Transmission Date: 20150721
  Serious: Yes (Death, Life-Threatening, Hospitalization, Other)
  Sender: FDA-Public Use
  Company Number: RO-CELGENE-ROU-2015011074

PATIENT
  Age: 70 Year
  Sex: Female
  Weight: 68 kg

DRUGS (8)
  1. BLINDED MLN9708 [Suspect]
     Active Substance: IXAZOMIB
     Indication: PLASMA CELL MYELOMA
     Route: 048
     Dates: start: 20130225, end: 20150106
  2. DEXAMETHASONE. [Suspect]
     Active Substance: DEXAMETHASONE
     Indication: PLASMA CELL MYELOMA
     Dosage: 4 MILLIGRAM
     Route: 048
     Dates: start: 20130225, end: 20150106
  3. REVLIMID [Suspect]
     Active Substance: LENALIDOMIDE
     Indication: PLASMA CELL MYELOMA
     Dosage: 15 MILLIGRAM
     Route: 048
     Dates: start: 20130225, end: 20150106
  4. ASPIRIN. [Concomitant]
     Active Substance: ASPIRIN
     Indication: PRODUCT USED FOR UNKNOWN INDICATION
     Route: 065
  5. TERTENSIF [Concomitant]
     Indication: HYPERTENSION
     Route: 065
     Dates: start: 2009
  6. DEXAMETHASONE. [Suspect]
     Active Substance: DEXAMETHASONE
     Indication: ADVERSE EVENT
     Route: 041
     Dates: start: 20150106
  7. PRESTARIUM [Concomitant]
     Active Substance: PERINDOPRIL
     Indication: HYPERTENSION
     Route: 065
     Dates: start: 2009
  8. METOPROLOL [Concomitant]
     Active Substance: METOPROLOL
     Indication: HYPERTENSION
     Route: 065
     Dates: start: 2009

REACTIONS (5)
  - Asthenia [Not Recovered/Not Resolved]
  - Chronic kidney disease [Not Recovered/Not Resolved]
  - Hypercalcaemia [Recovering/Resolving]
  - Myocardial infarction [Fatal]
  - Chest pain [Not Recovered/Not Resolved]

NARRATIVE: CASE EVENT DATE: 20150105
